FAERS Safety Report 14578236 (Version 1)
Quarter: 2018Q1

REPORT INFORMATION
  Report Type: Spontaneous
  Country: FR (occurrence: FR)
  Receive Date: 20180227
  Receipt Date: 20180227
  Transmission Date: 20180509
  Serious: Yes (Other)
  Sender: FDA-Public Use
  Company Number: FR-BAYER-2018-035545

PATIENT
  Age: 37 Year
  Sex: Male

DRUGS (2)
  1. GADOVIST [Suspect]
     Active Substance: GADOBUTROL
     Indication: CEREBROVASCULAR DISORDER
  2. GADOVIST [Suspect]
     Active Substance: GADOBUTROL
     Indication: NUCLEAR MAGNETIC RESONANCE IMAGING BRAIN
     Dosage: 12 ML, ONCE AT 2.0ML/S
     Route: 042
     Dates: start: 20180220, end: 20180220

REACTIONS (3)
  - Laryngeal disorder [Recovered/Resolved]
  - Haemorrhage [Recovered/Resolved]
  - Nausea [Recovered/Resolved]

NARRATIVE: CASE EVENT DATE: 20180220
